FAERS Safety Report 4861535-0 (Version None)
Quarter: 2005Q4

REPORT INFORMATION
  Report Type: 
  Country: None (occurrence: None)
  Receive Date: 20051129
  Receipt Date: 20050927
  Transmission Date: 20060501
  Serious: Yes (Other)
  Sender: FDA-Public Use
  Company Number: WAES 99081274

PATIENT
  Sex: Male

DRUGS (2)
  1. FOSAMAX [Suspect]
     Indication: OSTEOPOROSIS
     Dosage: PO
     Route: 048
     Dates: start: 19980301
  2. TEGRETOL [Concomitant]

REACTIONS (3)
  - OSTEONECROSIS [None]
  - TOOTH INJURY [None]
  - TOOTHACHE [None]
